FAERS Safety Report 16723097 (Version 2)
Quarter: 2019Q3

REPORT INFORMATION
  Report Type: Spontaneous
  Country: FR (occurrence: FR)
  Receive Date: 20190821
  Receipt Date: 20190823
  Transmission Date: 20191005
  Serious: Yes (Death)
  Sender: FDA-Public Use
  Company Number: FR-BEH-2019105815

PATIENT
  Age: 69 Year
  Sex: Male
  Weight: 101 kg

DRUGS (6)
  1. CETIRIZINE DIHYDROCHLORIDE [Concomitant]
     Active Substance: CETIRIZINE HYDROCHLORIDE
     Route: 065
  2. PRIVIGEN [Suspect]
     Active Substance: HUMAN IMMUNOGLOBULIN G
     Indication: CHRONIC INFLAMMATORY DEMYELINATING POLYRADICULONEUROPATHY
     Dosage: 40 GRAM, QD
     Route: 041
     Dates: start: 20190624, end: 20190628
  3. METHYLPREDNISOLONE. [Concomitant]
     Active Substance: METHYLPREDNISOLONE
     Route: 065
  4. POLARAMINE [Concomitant]
     Active Substance: DEXCHLORPHENIRAMINE MALEATE
     Route: 065
  5. PREGABALINE [Concomitant]
     Active Substance: PREGABALIN
     Route: 065
  6. ZOPICLONE [Concomitant]
     Active Substance: ZOPICLONE

REACTIONS (4)
  - Oedema peripheral [Fatal]
  - Pulmonary embolism [Fatal]
  - Deep vein thrombosis [Fatal]
  - Pain in extremity [Fatal]

NARRATIVE: CASE EVENT DATE: 20190630
